FAERS Safety Report 12417749 (Version 2)
Quarter: 2016Q3

REPORT INFORMATION
  Report Type: Spontaneous
  Country: US (occurrence: US)
  Receive Date: 20160530
  Receipt Date: 20160713
  Transmission Date: 20161109
  Serious: Yes (Life-Threatening, Disabling, Other)
  Sender: FDA-Public Use
  Company Number: US-AMGEN-USASP2016066305

PATIENT
  Age: 3 Year
  Sex: Male
  Weight: 12 kg

DRUGS (32)
  1. VANCOCIN [Concomitant]
     Active Substance: VANCOMYCIN HYDROCHLORIDE
     Indication: ANTI-INFECTIVE THERAPY
     Dosage: UNK
     Route: 042
     Dates: start: 20160222, end: 20160312
  2. ANECTINE [Concomitant]
     Active Substance: SUCCINYLCHOLINE CHLORIDE
     Indication: LUMBAR PUNCTURE
     Dosage: UNK
     Route: 042
     Dates: start: 20160301, end: 20160301
  3. FLUDARABINE [Suspect]
     Active Substance: FLUDARABINE PHOSPHATE
     Indication: ACUTE MYELOID LEUKAEMIA
     Dosage: 30 MG/M2, EVERY 24 HOURS OVER 30 MINUTES
     Route: 042
     Dates: start: 20160221
  4. TYLENOL [Concomitant]
     Active Substance: ACETAMINOPHEN
     Indication: PYREXIA
     Dosage: UNK
     Route: 042
     Dates: start: 20160227, end: 20160227
  5. ZOFRAN [Concomitant]
     Active Substance: ONDANSETRON HYDROCHLORIDE
     Dosage: 0.1 MG, AS NECESSARY
     Route: 048
     Dates: start: 20160301, end: 20160301
  6. DIPRIVAN [Concomitant]
     Active Substance: PROPOFOL
     Indication: LUMBAR PUNCTURE
     Dosage: UNK
     Route: 042
     Dates: start: 20160227, end: 20160227
  7. VERSED [Concomitant]
     Active Substance: MIDAZOLAM HYDROCHLORIDE
     Dosage: UNK
     Route: 042
     Dates: start: 20160301, end: 20160301
  8. SODIUM CHLORIDE. [Concomitant]
     Active Substance: SODIUM CHLORIDE
     Indication: BLOOD ELECTROLYTES
     Dosage: UNK
     Route: 040
     Dates: start: 20160225
  9. NEUPOGEN [Suspect]
     Active Substance: FILGRASTIM
     Indication: WHITE BLOOD CELL COUNT DECREASED
  10. CHLORHEXIDINE [Concomitant]
     Active Substance: CHLORHEXIDINE
     Dosage: UNK
     Route: 048
     Dates: start: 20160220, end: 20160315
  11. CANCIDAS [Concomitant]
     Active Substance: CASPOFUNGIN ACETATE
     Indication: ANTI-INFECTIVE THERAPY
     Dosage: UNK
     Route: 042
     Dates: start: 20160222, end: 20160313
  12. BENADRYL [Concomitant]
     Active Substance: DIPHENHYDRAMINE HYDROCHLORIDE
     Indication: PREMEDICATION
     Dosage: UNK
     Route: 042
     Dates: start: 20160223
  13. BACTRIM [Concomitant]
     Active Substance: SULFAMETHOXAZOLE\TRIMETHOPRIM
     Indication: ANTIBIOTIC PROPHYLAXIS
     Dosage: UNK
     Route: 048
     Dates: start: 20160222, end: 20160317
  14. GENTAK [Concomitant]
     Active Substance: GENTAMICIN SULFATE
     Dosage: UNK
     Route: 042
     Dates: start: 20160308, end: 20160308
  15. MAXIPIME [Concomitant]
     Active Substance: CEFEPIME HYDROCHLORIDE
     Indication: ANTI-INFECTIVE THERAPY
     Dosage: UNK
     Route: 042
     Dates: start: 20160218
  16. DEXTROSE. [Concomitant]
     Active Substance: DEXTROSE
     Dosage: UNK
     Route: 042
     Dates: start: 20160218, end: 20160313
  17. GENTAK [Concomitant]
     Active Substance: GENTAMICIN SULFATE
     Dosage: UNK
     Route: 042
     Dates: start: 20160305, end: 20160305
  18. ZOFRAN [Concomitant]
     Active Substance: ONDANSETRON HYDROCHLORIDE
     Indication: NAUSEA
     Dosage: 0.15 MG/KG, THREE TIMES A DAY
     Route: 048
     Dates: start: 20160221
  19. FLAGYL [Concomitant]
     Active Substance: METRONIDAZOLE\METRONIDAZOLE HYDROCHLORIDE
     Indication: FUNGAL INFECTION
  20. NEUPOGEN [Suspect]
     Active Substance: FILGRASTIM
     Indication: ACUTE MYELOID LEUKAEMIA
     Dosage: 5 MCG/KG, EVERY 24 HOURS
     Route: 042
     Dates: start: 20160220
  21. GENTAK [Concomitant]
     Active Substance: GENTAMICIN SULFATE
     Indication: PYREXIA
     Dosage: UNK
     Route: 042
     Dates: start: 20160227, end: 20160227
  22. KADIAN [Concomitant]
     Active Substance: MORPHINE SULFATE
     Indication: PAIN
     Dosage: UNK
     Route: 042
     Dates: start: 20160220
  23. GEMTUZUMAB OZOGAMICIN [Suspect]
     Active Substance: GEMTUZUMAB OZOGAMICIN
     Indication: ACUTE MYELOID LEUKAEMIA RECURRENT
     Dosage: 1.5 MG FLAG AND GO, 1 DOSE
     Route: 042
     Dates: start: 20160227
  24. TYLENOL [Concomitant]
     Active Substance: ACETAMINOPHEN
     Dosage: UNK
     Route: 042
     Dates: start: 20160228, end: 20160312
  25. ATIVAN [Concomitant]
     Active Substance: LORAZEPAM
     Indication: NAUSEA
     Dosage: UNK
     Route: 042
     Dates: start: 20160220
  26. CYTARABINE. [Suspect]
     Active Substance: CYTARABINE
     Indication: ACUTE MYELOID LEUKAEMIA
     Dosage: 2000 MG/M2, EVERY 24 HOURS OVER 3 HOURS
     Route: 042
     Dates: start: 20160221
  27. CHOLINE MAGNESIUM SALICYLATE [Concomitant]
     Indication: PYREXIA
     Dosage: UNK
     Route: 048
     Dates: start: 20160311, end: 20160311
  28. OXYCONTIN [Concomitant]
     Active Substance: OXYCODONE HYDROCHLORIDE
     Indication: PAIN
     Dosage: UNK
     Route: 048
     Dates: start: 20160227, end: 20160312
  29. LACTATED RINGERS [Concomitant]
     Active Substance: CALCIUM CHLORIDE\POTASSIUM CHLORIDE\SODIUM CHLORIDE\SODIUM LACTATE
     Indication: BLOOD ELECTROLYTES
     Dosage: UNK
     Route: 042
     Dates: start: 20160227, end: 20160311
  30. VERSED [Concomitant]
     Active Substance: MIDAZOLAM HYDROCHLORIDE
     Indication: LUMBAR PUNCTURE
     Dosage: UNK
     Route: 042
     Dates: start: 20160227, end: 20160227
  31. POTASSIUM CHLORIDE. [Concomitant]
     Active Substance: POTASSIUM CHLORIDE
     Indication: HYPOKALAEMIA
     Dosage: UNK
     Route: 042
     Dates: start: 20160228, end: 20160228
  32. PROVENTIL [Concomitant]
     Active Substance: ALBUTEROL
     Indication: WHEEZING
     Dosage: UNK
     Route: 055
     Dates: start: 20160310, end: 20160310

REACTIONS (2)
  - Epistaxis [Recovered/Resolved]
  - Sinusitis [Recovered/Resolved]

NARRATIVE: CASE EVENT DATE: 20160313
